FAERS Safety Report 11594847 (Version 2)
Quarter: 2015Q4

REPORT INFORMATION
  Report Type: Spontaneous
  Country: US (occurrence: US)
  Receive Date: 20151005
  Receipt Date: 20151124
  Transmission Date: 20160304
  Serious: No
  Sender: FDA-Public Use
  Company Number: US-ASTRAZENECA-2015SE81209

PATIENT
  Sex: Male
  Weight: 112.5 kg

DRUGS (10)
  1. LISINOPRIL. [Concomitant]
     Active Substance: LISINOPRIL
  2. LEVOTHYROXINE. [Concomitant]
     Active Substance: LEVOTHYROXINE
     Indication: THYROID DISORDER
  3. TRIGLYCERIDES [Concomitant]
  4. METFORMIN [Concomitant]
     Active Substance: METFORMIN HYDROCHLORIDE
     Indication: TYPE 2 DIABETES MELLITUS
  5. FENOFIBRATE. [Concomitant]
     Active Substance: FENOFIBRATE
  6. BABY ASPIRIN [Concomitant]
     Active Substance: ASPIRIN
     Dosage: ONE IN MORNING
  7. ATORVASTATIN [Concomitant]
     Active Substance: ATORVASTATIN
  8. GLIMEPIRIDE. [Concomitant]
     Active Substance: GLIMEPIRIDE
     Indication: TYPE 2 DIABETES MELLITUS
  9. BYDUREON [Suspect]
     Active Substance: EXENATIDE
     Indication: TYPE 2 DIABETES MELLITUS
     Route: 058
     Dates: start: 20150805
  10. METOPROLOL [Concomitant]
     Active Substance: METOPROLOL

REACTIONS (10)
  - Eructation [Unknown]
  - Weight decreased [Unknown]
  - Abdominal discomfort [Unknown]
  - Injection site erythema [Unknown]
  - Body height decreased [Unknown]
  - Injection site haemorrhage [Unknown]
  - Injection site mass [Unknown]
  - Diarrhoea [Unknown]
  - Dysgeusia [Unknown]
  - Injection site pruritus [Recovered/Resolved]
